FAERS Safety Report 5896341-1 (Version None)
Quarter: 2008Q3

REPORT INFORMATION
  Report Type: 
  Country: None (occurrence: None)
  Receive Date: 20080924
  Receipt Date: 20071023
  Transmission Date: 20090109
  Serious: Yes (Other)
  Sender: FDA-Public Use
  Company Number: US-ASTRAZENECA-2007UW21453

PATIENT
  Age: 40 Year
  Sex: Male

DRUGS (4)
  1. SEROQUEL [Suspect]
     Indication: SCHIZOPHRENIA
     Dosage: 50 MG IN MORNING, 600 MG AT NIGHT
     Route: 048
  2. SEROQUEL [Suspect]
     Route: 048
  3. ZOCOR [Concomitant]
  4. COGENTIN [Concomitant]

REACTIONS (1)
  - TACHYCARDIA [None]
